FAERS Safety Report 9634429 (Version 1)
Quarter: 2013Q4

REPORT INFORMATION
  Report Type: Spontaneous
  Country: GB (occurrence: GB)
  Receive Date: 20131021
  Receipt Date: 20131021
  Transmission Date: 20140711
  Serious: Yes (Death, Hospitalization, Other)
  Sender: FDA-Public Use
  Company Number: GB-B.I. PHARMACEUTICALS,INC./RIDGEFIELD-2013-BI-33513UK

PATIENT
  Sex: Female

DRUGS (3)
  1. PRADAXA [Suspect]
     Indication: CEREBROVASCULAR ACCIDENT PROPHYLAXIS
  2. PRADAXA [Suspect]
     Indication: ATRIAL FIBRILLATION
  3. ASPIRIN [Concomitant]

REACTIONS (2)
  - Haemorrhage intracranial [Fatal]
  - Cerebrovascular accident [Fatal]
